FAERS Safety Report 24436888 (Version 1)
Quarter: 2024Q4

REPORT INFORMATION
  Report Type: Spontaneous
  Country: JP (occurrence: JP)
  Receive Date: 20241015
  Receipt Date: 20241015
  Transmission Date: 20250115
  Serious: Yes (Hospitalization)
  Sender: ROCHE
  Company Number: JP-CHUGAI-2024035326AA

PATIENT
  Age: 69 Year
  Sex: Female
  Weight: 48.3 kg

DRUGS (2)
  1. TECENTRIQ [Suspect]
     Active Substance: ATEZOLIZUMAB
     Indication: Lung neoplasm malignant
     Dosage: 1200 MILLIGRAM
     Route: 042
     Dates: start: 20240229, end: 20240809
  2. LEVOTHYROXINE SODIUM [Concomitant]
     Active Substance: LEVOTHYROXINE SODIUM
     Dosage: 25 MICROGRAM, QD
     Route: 050
     Dates: start: 20240719

REACTIONS (1)
  - Hypothalamic pituitary adrenal axis suppression [Recovering/Resolving]

NARRATIVE: CASE EVENT DATE: 20240830
